FAERS Safety Report 8228245-3 (Version None)
Quarter: 2012Q1

REPORT INFORMATION
  Report Type: 
  Country: None (occurrence: None)
  Receive Date: 20120322
  Receipt Date: 20111122
  Transmission Date: 20120608
  Serious: No
  Sender: FDA-Public Use
  Company Number: US-BRISTOL-MYERS SQUIBB COMPANY-16218083

PATIENT
  Age: 67 Year

DRUGS (2)
  1. ERBITUX [Suspect]
     Indication: LUNG NEOPLASM MALIGNANT
     Dosage: ALSO TOOK 492 MG:21DAY CYCLE (5 TIMES) 8-11 AND 11-7 DAY 1,10,17 OF EACH CYCLE
     Route: 042
  2. ERBITUX [Suspect]
     Indication: HEAD AND NECK CANCER
     Dosage: ALSO TOOK 492 MG:21DAY CYCLE (5 TIMES) 8-11 AND 11-7 DAY 1,10,17 OF EACH CYCLE
     Route: 042

REACTIONS (1)
  - CIRCUMSTANCE OR INFORMATION CAPABLE OF LEADING TO MEDICATION ERROR [None]
